FAERS Safety Report 9457622 (Version 1)
Quarter: 2013Q3

REPORT INFORMATION
  Report Type: Spontaneous
  Country: US (occurrence: US)
  Receive Date: 20130814
  Receipt Date: 20130814
  Transmission Date: 20140515
  Serious: No
  Sender: FDA-Public Use
  Company Number: US-PFIZER INC-2013231925

PATIENT
  Age: 76 Year
  Sex: Male

DRUGS (2)
  1. XALKORI [Suspect]
     Indication: LUNG NEOPLASM MALIGNANT
     Dosage: 200 MG, 2X/DAY
     Route: 048
     Dates: start: 20130807
  2. XALKORI [Suspect]
     Indication: BRONCHIAL NEOPLASM

REACTIONS (2)
  - Nausea [Unknown]
  - Vomiting [Unknown]
